FAERS Safety Report 9443758 (Version 1)
Quarter: 2013Q3

REPORT INFORMATION
  Report Type: Spontaneous
  Country: US (occurrence: US)
  Receive Date: 20130806
  Receipt Date: 20130806
  Transmission Date: 20140515
  Serious: No
  Sender: FDA-Public Use
  Company Number: US-009507513-1308USA001025

PATIENT
  Sex: Female

DRUGS (3)
  1. ZIOPTAN [Suspect]
     Indication: INTRAOCULAR PRESSURE TEST
     Dosage: 1 DROP IN EACH EYE ONCE DAILY
     Route: 047
     Dates: start: 201207
  2. SYNTHROID [Concomitant]
  3. PRAVASTATIN SODIUM [Concomitant]

REACTIONS (3)
  - Vision blurred [Recovering/Resolving]
  - Eye pain [Recovering/Resolving]
  - Incorrect product storage [Unknown]
